FAERS Safety Report 12474384 (Version 1)
Quarter: 2016Q2

REPORT INFORMATION
  Report Type: Spontaneous
  Country: US (occurrence: None)
  Receive Date: 20160616
  Receipt Date: 20160616
  Transmission Date: 20160815
  Serious: Yes (Other)
  Sender: FDA-Public Use
  Company Number: None

PATIENT
  Age: 28 Year
  Sex: Female
  Weight: 61.24 kg

DRUGS (4)
  1. TIOCONAZOLE 1 1 DOSE TREATMENT [Suspect]
     Active Substance: TIOCONAZOLE
     Indication: VULVOVAGINAL MYCOTIC INFECTION
     Dosage: 1 READY TO USE APPLICATOR ONCE AT BEDTIME INSERTION VAGINAL
     Route: 067
     Dates: start: 20160608, end: 20160609
  2. VITAMIN C [Concomitant]
     Active Substance: ASCORBIC ACID
  3. HAIR SKIN PILLS [Concomitant]
  4. ONE-A-DAY NOS [Concomitant]
     Active Substance: MINERALS\VITAMINS
     Dosage: 6.5% 1 READY TO USE APPLICATOR ONCE AT BEDTIME, INSERTION VAGINAL

REACTIONS (3)
  - Vulvovaginal pain [None]
  - Abasia [None]
  - Vulvovaginal swelling [None]

NARRATIVE: CASE EVENT DATE: 20160609
